FAERS Safety Report 9852312 (Version 2)
Quarter: 2014Q1

REPORT INFORMATION
  Report Type: Spontaneous
  Country: SV (occurrence: SV)
  Receive Date: 20140129
  Receipt Date: 20140210
  Transmission Date: 20141002
  Serious: Yes (Death, Other)
  Sender: FDA-Public Use
  Company Number: SV-ELI_LILLY_AND_COMPANY-SV201401008172

PATIENT
  Age: 62 Year
  Sex: Male

DRUGS (3)
  1. OLANZAPINE [Suspect]
     Indication: ALCOHOLIC PSYCHOSIS
     Dosage: 10 MG, EACH EVENING
     Route: 065
     Dates: start: 20140109, end: 20140110
  2. OLANZAPINE [Suspect]
     Indication: DEPRESSION
  3. WELLBUTRIN [Concomitant]
     Indication: PRODUCT USED FOR UNKNOWN INDICATION
     Dosage: 150 MG, EACH MORNING
     Route: 065
     Dates: start: 20140109

REACTIONS (2)
  - Liver injury [Fatal]
  - Hepatic cirrhosis [Not Recovered/Not Resolved]
